FAERS Safety Report 13453969 (Version 1)
Quarter: 2017Q2

REPORT INFORMATION
  Report Type: Spontaneous
  Country: US (occurrence: US)
  Receive Date: 20170418
  Receipt Date: 20170418
  Transmission Date: 20170830
  Serious: No
  Sender: FDA-Public Use
  Company Number: US-ALLERGAN-1677379US

PATIENT
  Sex: Female

DRUGS (4)
  1. VITAMINS NOS [Concomitant]
     Active Substance: VITAMINS
     Indication: PRODUCT USED FOR UNKNOWN INDICATION
     Route: 048
  2. LAMOTRIGINE. [Concomitant]
     Active Substance: LAMOTRIGINE
     Indication: DEPRESSION
     Route: 048
  3. ALLEGRA [Concomitant]
     Active Substance: FEXOFENADINE HYDROCHLORIDE
     Indication: SEASONAL ALLERGY
     Route: 048
  4. LATISSE [Suspect]
     Active Substance: BIMATOPROST
     Indication: GROWTH OF EYELASHES
     Dosage: 2 GTT, UNK
     Route: 061

REACTIONS (3)
  - Hair growth abnormal [Recovered/Resolved]
  - Eye irritation [Recovered/Resolved]
  - Blepharal pigmentation [Recovered/Resolved]

NARRATIVE: CASE EVENT DATE: 201611
